FAERS Safety Report 8477526-7 (Version None)
Quarter: 2012Q2

REPORT INFORMATION
  Report Type: 
  Country: None (occurrence: None)
  Receive Date: 20120629
  Receipt Date: 20120619
  Transmission Date: 20120825
  Serious: Yes (Hospitalization)
  Sender: FDA-Public Use
  Company Number: NL-MILLENNIUM PHARMACEUTICALS, INC.-2012-02493

PATIENT

DRUGS (11)
  1. ACETAMINOPHEN [Concomitant]
  2. FENTANYL CITRATE [Concomitant]
  3. NEUPOGEN [Concomitant]
  4. CYCLOPHOSPHAMIDE [Suspect]
     Indication: MULTIPLE MYELOMA
  5. MORPHINE SULFATE [Concomitant]
  6. DEXAMETHASONE [Suspect]
     Indication: MULTIPLE MYELOMA
  7. VELCADE [Suspect]
     Indication: MULTIPLE MYELOMA
     Route: 058
  8. NEUPOGEN [Suspect]
     Indication: MULTIPLE MYELOMA
  9. GABAPENTIN [Concomitant]
  10. ACENOCOUMAROL [Concomitant]
     Route: 048
  11. VALACICLOVIR [Concomitant]
     Dosage: 500 MG, UNK

REACTIONS (3)
  - OROPHARYNGEAL PAIN [None]
  - CHEST PAIN [None]
  - PYREXIA [None]
